FAERS Safety Report 11404572 (Version 2)
Quarter: 2015Q3

REPORT INFORMATION
  Report Type: Spontaneous
  Country: US (occurrence: US)
  Receive Date: 20150821
  Receipt Date: 20150923
  Transmission Date: 20151125
  Serious: Yes (Hospitalization, Other)
  Sender: FDA-Public Use
  Company Number: US-AMGEN-USASP2015083831

PATIENT
  Age: 61 Year
  Sex: Female
  Weight: 55.79 kg

DRUGS (1)
  1. PROLIA [Suspect]
     Active Substance: DENOSUMAB
     Indication: OSTEOPOROSIS POSTMENOPAUSAL
     Dosage: 60 MG, Q6MO
     Route: 058
     Dates: start: 20131122

REACTIONS (6)
  - Osteonecrosis of jaw [Unknown]
  - Drug hypersensitivity [Unknown]
  - Pneumonia [Unknown]
  - Tooth disorder [Unknown]
  - Toothache [Unknown]
  - Post procedural haemorrhage [Unknown]

NARRATIVE: CASE EVENT DATE: 2015
